FAERS Safety Report 6794575-5 (Version None)
Quarter: 2010Q2

REPORT INFORMATION
  Report Type: 
  Country: None (occurrence: None)
  Receive Date: 20100625
  Receipt Date: 20100617
  Transmission Date: 20101027
  Serious: Yes (Hospitalization)
  Sender: FDA-Public Use
  Company Number: JP-ELI_LILLY_AND_COMPANY-JP201006004876

PATIENT
  Age: 57 Year
  Sex: Female

DRUGS (3)
  1. HUMALOG MIX 50/50 [Suspect]
     Indication: DIABETES MELLITUS
     Dosage: UNK, UNK, 15-30U/D
     Route: 058
     Dates: start: 20100602, end: 20100611
  2. HUMALOG [Suspect]
     Indication: DIABETES MELLITUS
     Dosage: 18 U, DAILY (1/D)
     Route: 058
     Dates: start: 20100612
  3. VALTREX [Concomitant]
     Indication: HERPES ZOSTER
     Dosage: 3000 MG, UNK
     Route: 048
     Dates: start: 20100601, end: 20100607

REACTIONS (1)
  - LIVER DISORDER [None]
